FAERS Safety Report 20451464 (Version 1)
Quarter: 2022Q1

REPORT INFORMATION
  Report Type: Spontaneous
  Country: JP (occurrence: JP)
  Receive Date: 20220209
  Receipt Date: 20220209
  Transmission Date: 20220423
  Serious: Yes (Other)
  Sender: FDA-Public Use
  Company Number: JP-TAKEDA-2022TJP014763

PATIENT
  Age: 97 Year
  Sex: Male

DRUGS (1)
  1. ADCETRIS [Suspect]
     Active Substance: BRENTUXIMAB VEDOTIN
     Indication: Anaplastic large-cell lymphoma
     Dosage: UNK
     Route: 041
     Dates: start: 20210601

REACTIONS (2)
  - Anaplastic large-cell lymphoma [Unknown]
  - Disease progression [Unknown]

NARRATIVE: CASE EVENT DATE: 20220112
